FAERS Safety Report 9433014 (Version 1)
Quarter: 2013Q3

REPORT INFORMATION
  Report Type: Spontaneous
  Country: CA (occurrence: CA)
  Receive Date: 20130731
  Receipt Date: 20130731
  Transmission Date: 20140515
  Serious: Yes (Disabling)
  Sender: FDA-Public Use
  Company Number: CA-ROCHE-1254889

PATIENT
  Age: 39 Year
  Sex: Female
  Weight: 64.92 kg

DRUGS (7)
  1. ACCUTANE [Suspect]
     Route: 048
  2. LEVONORGESTREL [Concomitant]
     Route: 048
  3. MICRONOR [Concomitant]
     Dosage: 28 DAY
     Route: 048
  4. WELLBUTRIN XL [Concomitant]
     Route: 048
  5. ETHINYL ESTRADIOL/NORETHINDRONE [Concomitant]
  6. ACCUTANE [Suspect]
     Indication: PRODUCT USED FOR UNKNOWN INDICATION
     Route: 048
  7. ACCUTANE [Suspect]
     Route: 048

REACTIONS (2)
  - Hearing impaired [Not Recovered/Not Resolved]
  - Tinnitus [Not Recovered/Not Resolved]
